FAERS Safety Report 13586533 (Version 1)
Quarter: 2017Q2

REPORT INFORMATION
  Report Type: Spontaneous
  Country: AU (occurrence: AU)
  Receive Date: 20170526
  Receipt Date: 20170526
  Transmission Date: 20170830
  Serious: Yes (Other)
  Sender: FDA-Public Use
  Company Number: AU-BAYER-2017-093906

PATIENT
  Age: 16 Year
  Sex: Female

DRUGS (4)
  1. YAZ [Suspect]
     Active Substance: DROSPIRENONE\ETHINYL ESTRADIOL
     Indication: DYSMENORRHOEA
  2. YAZ [Suspect]
     Active Substance: DROSPIRENONE\ETHINYL ESTRADIOL
     Indication: CONTRACEPTION
     Dosage: UNK
     Dates: start: 201210, end: 2015
  3. YAZ [Suspect]
     Active Substance: DROSPIRENONE\ETHINYL ESTRADIOL
     Indication: MENORRHAGIA
  4. YAZ [Suspect]
     Active Substance: DROSPIRENONE\ETHINYL ESTRADIOL
     Indication: ACNE
     Dosage: UNK
     Route: 048
     Dates: start: 2016, end: 20170421

REACTIONS (19)
  - Depression [Recovering/Resolving]
  - Crying [Recovering/Resolving]
  - Polycystic ovaries [None]
  - Endometriosis [None]
  - Uterine cyst [None]
  - Anxiety [Recovering/Resolving]
  - Anxiety [Recovered/Resolved]
  - Withdrawal syndrome [None]
  - Depression [Recovered/Resolved]
  - Chest discomfort [Recovered/Resolved]
  - Mental disorder [Recovered/Resolved]
  - Drug ineffective [None]
  - Libido decreased [Recovered/Resolved]
  - Spontaneous haematoma [None]
  - Depressed mood [Recovered/Resolved]
  - Amenorrhoea [None]
  - Ovarian cyst [None]
  - Impaired work ability [None]
  - Eating disorder [Recovering/Resolving]

NARRATIVE: CASE EVENT DATE: 2012
